FAERS Safety Report 6451244-9 (Version None)
Quarter: 2009Q4

REPORT INFORMATION
  Report Type: 
  Country: None (occurrence: None)
  Receive Date: 20091123
  Receipt Date: 20091123
  Transmission Date: 20100525
  Serious: Yes (Other)
  Sender: FDA-Public Use
  Company Number: GB-PFIZER INC-2009279689

PATIENT
  Age: 67 Year
  Sex: Female

DRUGS (2)
  1. LYRICA [Suspect]
     Indication: NECK PAIN
     Dosage: UNK
     Dates: start: 20090101
  2. MORPHINE [Concomitant]
     Route: 062

REACTIONS (4)
  - ANXIETY [None]
  - NERVOUSNESS [None]
  - SURGERY [None]
  - VISUAL IMPAIRMENT [None]
